FAERS Safety Report 9440142 (Version 2)
Quarter: 2013Q3

REPORT INFORMATION
  Report Type: Spontaneous
  Country: US (occurrence: US)
  Receive Date: 20130805
  Receipt Date: 20130815
  Transmission Date: 20140515
  Serious: Yes (Hospitalization, Other)
  Sender: FDA-Public Use
  Company Number: US-009507513-2008-178516-NL

PATIENT
  Sex: Female
  Weight: 73.5 kg

DRUGS (10)
  1. NUVARING [Suspect]
     Indication: CONTRACEPTION
     Dosage: CONTINUING: NO
     Route: 067
     Dates: start: 20070708, end: 20071001
  2. NUVARING [Suspect]
     Indication: DYSMENORRHOEA
  3. ADVAIR [Concomitant]
     Dosage: DOSE TEXT: 250/50
     Dates: start: 20070924, end: 20071030
  4. PROVENTIL [Concomitant]
     Indication: ASTHMA
     Dosage: INDICATION 2 (LLT): SHORTNESS OF BREATH (SHORTNESS OF BREATH)
  5. ALLEGRA [Concomitant]
     Indication: HYPERSENSITIVITY
     Dosage: 180 MG, QD
  6. PRILOSEC [Concomitant]
     Indication: PRODUCT USED FOR UNKNOWN INDICATION
     Dosage: 20 MG, QD
     Dates: start: 20070924
  7. DICLOFENAC SODIUM (+) MISOPROSTOL [Concomitant]
     Indication: PRODUCT USED FOR UNKNOWN INDICATION
     Dosage: 75 MG, QD
     Dates: start: 20070924
  8. SKELAXIN [Concomitant]
     Indication: CHEST PAIN
     Dosage: UNK DF, UNK
     Dates: start: 20070924
  9. IBUPROFEN [Concomitant]
     Indication: CHEST PAIN
     Dosage: UNK DF, UNK
     Dates: start: 20080924
  10. TERAZOL 7 VAGINAL CREAM [Concomitant]

REACTIONS (3)
  - Pneumonia [Unknown]
  - Pulmonary embolism [Unknown]
  - Off label use [Unknown]
